FAERS Safety Report 6153709-6 (Version None)
Quarter: 2009Q2

REPORT INFORMATION
  Report Type: 
  Country: None (occurrence: None)
  Receive Date: 20090410
  Receipt Date: 20090404
  Transmission Date: 20091009
  Serious: Yes (Other)
  Sender: FDA-Public Use
  Company Number: CHPA2009US08617

PATIENT
  Age: 75 Year
  Sex: Female

DRUGS (2)
  1. BENEFIBER W/ WHEAT DEXTRIN (NCH) (WHEAT DEXTRIN)) POWDER [Suspect]
     Dosage: UNK UNK ORAL
     Route: 048
     Dates: start: 20071201, end: 20080101
  2. ALL OTHER THERAPEUTIC PRODUCTS (NO INGREDIENTS/SUBSTANCES) [Concomitant]

REACTIONS (2)
  - COLITIS ULCERATIVE [None]
  - MALAISE [None]
